FAERS Safety Report 4698337-4 (Version None)
Quarter: 2005Q2

REPORT INFORMATION
  Report Type: 
  Country: None (occurrence: None)
  Receive Date: 20050623
  Receipt Date: 20050321
  Transmission Date: 20051028
  Serious: Yes (Hospitalization)
  Sender: FDA-Public Use
  Company Number: US-ROCHE-399473

PATIENT
  Age: 49 Year
  Sex: Female
  Weight: 62.6 kg

DRUGS (8)
  1. PEGASYS [Suspect]
     Dosage: STRENGTH AND FORMULATION REPORTED AS 180 MCG/0.5 ML
     Route: 058
     Dates: start: 20050201
  2. RIBAVIRIN [Suspect]
     Route: 048
     Dates: start: 20050201
  3. REQUIP [Concomitant]
  4. ZYRTEC [Concomitant]
  5. LASIX [Concomitant]
     Indication: ASCITES
     Route: 048
  6. SPIRONOLACTONE [Concomitant]
     Indication: HYPERTENSION
     Route: 048
  7. MULTIVITAMIN NOS [Concomitant]
     Indication: VITAMIN SUPPLEMENTATION
     Route: 048
  8. REMERON [Concomitant]
     Dates: start: 20041201

REACTIONS (29)
  - ABDOMINAL PAIN [None]
  - ABDOMINAL PAIN UPPER [None]
  - AGITATION [None]
  - AMMONIA INCREASED [None]
  - ANXIETY [None]
  - ASCITES [None]
  - BACK PAIN [None]
  - CAROTID ARTERY OCCLUSION [None]
  - CLOSTRIDIAL INFECTION [None]
  - CONDITION AGGRAVATED [None]
  - CONFUSIONAL STATE [None]
  - COUGH [None]
  - DEPRESSION [None]
  - DISEASE RECURRENCE [None]
  - DIZZINESS [None]
  - DRY MOUTH [None]
  - DRY SKIN [None]
  - FATIGUE [None]
  - HYPERHIDROSIS [None]
  - INJECTION SITE PAIN [None]
  - INSOMNIA [None]
  - JAUNDICE [None]
  - MEMORY IMPAIRMENT [None]
  - MOOD SWINGS [None]
  - MUSCLE SPASMS [None]
  - OCULAR ICTERUS [None]
  - RESTLESS LEGS SYNDROME [None]
  - SEPSIS [None]
  - SPOUSAL ABUSE [None]
